FAERS Safety Report 17116407 (Version 8)
Quarter: 2022Q4

REPORT INFORMATION
  Report Type: Spontaneous
  Country: CZ (occurrence: CZ)
  Receive Date: 20191205
  Receipt Date: 20221201
  Transmission Date: 20230113
  Serious: Yes (Hospitalization, Other)
  Sender: FDA-Public Use
  Company Number: CZ-SA-2019SA189810

PATIENT
  Age: 54 Year
  Sex: Female

DRUGS (26)
  1. BETAXOLOL HYDROCHLORIDE [Suspect]
     Active Substance: BETAXOLOL HYDROCHLORIDE
     Indication: Hypertension
     Dosage: 20 MG, QD, 1/4 TABLET
     Route: 048
     Dates: start: 2015
  2. BETAXOLOL HYDROCHLORIDE [Suspect]
     Active Substance: BETAXOLOL HYDROCHLORIDE
     Dosage: 5 MILLIGRAM, QD
     Route: 048
  3. BETAXOLOL HYDROCHLORIDE [Suspect]
     Active Substance: BETAXOLOL HYDROCHLORIDE
     Dosage: 1 DOSAGE FORM, QD
     Route: 065
  4. MOXONIDINE [Suspect]
     Active Substance: MOXONIDINE
     Indication: Hypertension
     Dosage: 0.4 MG,QD,1 TAB EVENING,1 DF, QN AT NIGHT
     Route: 048
  5. MOXONIDINE [Suspect]
     Active Substance: MOXONIDINE
     Dosage: 1 DOSAGE FORM, QD (AT NIGHT)
     Route: 065
  6. AMLODIPINE [Suspect]
     Active Substance: AMLODIPINE BESYLATE
     Indication: Hypertension
     Dosage: 10 MG, QD, QN
     Route: 048
  7. AMLODIPINE [Suspect]
     Active Substance: AMLODIPINE BESYLATE
     Dosage: 1 DOSAGE FORM (QN)
     Route: 065
  8. HYDROCHLOROTHIAZIDE\TELMISARTAN [Suspect]
     Active Substance: HYDROCHLOROTHIAZIDE\TELMISARTAN
     Indication: Hypertension
     Dosage: 80/12.5 MG, 1 TABLET MORNING
     Route: 048
  9. HYDROCHLOROTHIAZIDE\TELMISARTAN [Suspect]
     Active Substance: HYDROCHLOROTHIAZIDE\TELMISARTAN
     Dosage: 1 DOSAGE FORM, QD (THE MORNING)
     Route: 065
  10. AMLODIPINE [Suspect]
     Active Substance: AMLODIPINE BESYLATE
     Indication: Hypertension
     Dosage: UNK
     Route: 065
  11. TELMISARTAN [Suspect]
     Active Substance: TELMISARTAN
     Indication: Hypertension
     Dosage: 80 MG, QD
     Route: 048
  12. AMLODIPINE\TELMISARTAN [Suspect]
     Active Substance: AMLODIPINE\TELMISARTAN
     Indication: Hypertension
     Dosage: 10 MG, QD
     Route: 048
  13. AMLODIPINE\TELMISARTAN [Suspect]
     Active Substance: AMLODIPINE\TELMISARTAN
     Dosage: 80 MG, QD
     Route: 048
  14. URAPIDIL [Suspect]
     Active Substance: URAPIDIL
     Indication: Hypertension
     Dosage: 1 TAB IN MORNING AND EVENING 30 MG, BID
     Route: 048
     Dates: start: 2015
  15. URAPIDIL [Suspect]
     Active Substance: URAPIDIL
     Dosage: 2DF, QD,1 DF, BID IN MORNING AND AT NIGHT
     Route: 065
  16. URAPIDIL [Suspect]
     Active Substance: URAPIDIL
     Dosage: 30 MG, BID, 1 TBL MORNING, 1TBL EVENING
     Route: 048
  17. TWYNSTA [Suspect]
     Active Substance: AMLODIPINE BESYLATE\TELMISARTAN
     Indication: Hypertension
     Dosage: 80 MG, QD
     Route: 048
  18. TWYNSTA [Suspect]
     Active Substance: AMLODIPINE BESYLATE\TELMISARTAN
     Dosage: 10 MG, QD
     Route: 048
  19. HYDROCHLOROTHIAZIDE\TELMISARTAN [Suspect]
     Active Substance: HYDROCHLOROTHIAZIDE\TELMISARTAN
     Indication: Hypertension
     Dosage: 80/12.5 MG 1 TABLET MORNING
     Route: 048
  20. MICARDIS [Suspect]
     Active Substance: TELMISARTAN
     Indication: Hypertension
     Dosage: 80 MILLIGRAM, QD
     Route: 048
     Dates: start: 2014
  21. METFORMIN [Concomitant]
     Active Substance: METFORMIN HYDROCHLORIDE
     Indication: Hypercholesterolaemia
     Dosage: UNK
     Route: 065
  22. METFORMIN [Concomitant]
     Active Substance: METFORMIN HYDROCHLORIDE
     Indication: Diabetes mellitus
  23. PERINDOPRIL [Concomitant]
     Active Substance: PERINDOPRIL
     Dosage: UNK
     Route: 065
  24. INDAPAMIDE [Concomitant]
     Active Substance: INDAPAMIDE
     Dosage: UNK
     Route: 065
  25. AMLODIPINE [Concomitant]
     Active Substance: AMLODIPINE BESYLATE
     Dosage: 10 MILLIGRAM, QD
     Route: 065
  26. MOXONIDINE [Concomitant]
     Active Substance: MOXONIDINE
     Indication: Hypertension
     Dosage: 0.4 MILLIGRAM, QD
     Route: 065

REACTIONS (12)
  - Hypertensive crisis [Recovered/Resolved]
  - Ischaemic stroke [Recovered/Resolved]
  - Cerebrovascular disorder [Unknown]
  - Albuminuria [Unknown]
  - Hypercholesterolaemia [Unknown]
  - Left ventricular hypertrophy [Unknown]
  - Diabetes mellitus [Unknown]
  - Hyperglycaemia [Unknown]
  - Drug ineffective [Unknown]
  - Hypertension [Recovered/Resolved]
  - Treatment noncompliance [Recovered/Resolved]
  - Medication error [Unknown]

NARRATIVE: CASE EVENT DATE: 20150101
